FAERS Safety Report 4775073-7 (Version None)
Quarter: 2005Q3

REPORT INFORMATION
  Report Type: 
  Country: None (occurrence: None)
  Receive Date: 20050919
  Receipt Date: 20050831
  Transmission Date: 20060218
  Serious: Yes (Death, Hospitalization, Other)
  Sender: FDA-Public Use
  Company Number: WAES 0408USA00170

PATIENT
  Age: 55 Year
  Sex: Male

DRUGS (1)
  1. COZAAR [Suspect]
     Indication: HYPERTENSION
     Dosage: 50 MG/DAILY, PO
     Route: 048
     Dates: start: 20010831, end: 20020725

REACTIONS (3)
  - ANAEMIA [None]
  - LEUKAEMIA [None]
  - MYELODYSPLASTIC SYNDROME [None]
